FAERS Safety Report 12673378 (Version 1)
Quarter: 2016Q3

REPORT INFORMATION
  Report Type: Spontaneous
  Country: US (occurrence: US)
  Receive Date: 20160822
  Receipt Date: 20160822
  Transmission Date: 20161109
  Serious: No
  Sender: FDA-Public Use
  Company Number: US-BAYER-2016-158310

PATIENT
  Sex: Female

DRUGS (1)
  1. MIRENA [Suspect]
     Active Substance: LEVONORGESTREL
     Dosage: 20 MCG/24HR, CONT
     Route: 015
     Dates: start: 20160809

REACTIONS (3)
  - Abdominal pain lower [Not Recovered/Not Resolved]
  - Procedural pain [Recovered/Resolved]
  - Device use issue [None]

NARRATIVE: CASE EVENT DATE: 20160809
